FAERS Safety Report 7197384-0 (Version None)
Quarter: 2010Q4

REPORT INFORMATION
  Report Type: 
  Country: None (occurrence: None)
  Receive Date: 20101213
  Receipt Date: 20101201
  Transmission Date: 20110411
  Serious: Yes (Other)
  Sender: FDA-Public Use
  Company Number: 2010MA004978

PATIENT
  Age: 64 Year
  Sex: Female

DRUGS (11)
  1. FEVERALL [Suspect]
     Indication: ANALGESIC THERAPY
     Dosage: PRN
  2. SOLPADOL (PANADEINE CO) [Suspect]
     Indication: PAIN
  3. WARFARIN [Concomitant]
  4. LANSOPRAZOLE [Concomitant]
  5. FERROUS SULFATE [Concomitant]
  6. SPIRONOLACTONE [Concomitant]
  7. BISOPROLOL [Concomitant]
  8. LEVOTHYROXINE SODIUM [Concomitant]
  9. RAMIPRIL [Concomitant]
  10. FUROSEMIDE [Concomitant]
  11. PARACETAMOL [Concomitant]

REACTIONS (2)
  - ABDOMINAL PAIN [None]
  - MUSCLE SPASMS [None]
